FAERS Safety Report 8107678-X (Version None)
Quarter: 2012Q1

REPORT INFORMATION
  Report Type: 
  Country: None (occurrence: None)
  Receive Date: 20120202
  Receipt Date: 20120127
  Transmission Date: 20120608
  Serious: Yes (Other)
  Sender: FDA-Public Use
  Company Number: US-SHIRE-SPV1-2009-01788

PATIENT
  Age: 8 Year
  Sex: Male
  Weight: 21.315 kg

DRUGS (2)
  1. ADDERALL XR 10 [Suspect]
     Indication: ATTENTION DEFICIT/HYPERACTIVITY DISORDER
     Dosage: 10 MG, 1X/DAY:QD
     Route: 048
     Dates: start: 20070101, end: 20070101
  2. ADDERALL XR 10 [Suspect]
     Dosage: UNK, UNK
     Dates: start: 20090701, end: 20090701

REACTIONS (5)
  - INSOMNIA [None]
  - SUICIDE ATTEMPT [None]
  - ABDOMINAL PAIN UPPER [None]
  - HEADACHE [None]
  - DIARRHOEA [None]
